FAERS Safety Report 6572480-7 (Version None)
Quarter: 2010Q1

REPORT INFORMATION
  Report Type: 
  Country: None (occurrence: None)
  Receive Date: 20100205
  Receipt Date: 20100128
  Transmission Date: 20100710
  Serious: Yes (Hospitalization)
  Sender: FDA-Public Use
  Company Number: ES-MERCK-1001ESP00035

PATIENT
  Age: 82 Year
  Sex: Male

DRUGS (6)
  1. HYZAAR [Suspect]
     Indication: HYPERTENSION
     Route: 048
     Dates: start: 20090501, end: 20091021
  2. METFORMIN HYDROCHLORIDE [Concomitant]
     Indication: DIABETES MELLITUS
     Route: 048
     Dates: start: 20090501, end: 20091021
  3. TORSEMIDE [Suspect]
     Indication: HYPERTENSION
     Route: 048
     Dates: start: 20090501, end: 20091021
  4. CYANOCOBALAMIN AND FOLIC ACID [Concomitant]
     Indication: HYPOVITAMINOSIS
     Route: 048
     Dates: start: 20090501, end: 20091021
  5. REPAGLINIDE [Concomitant]
     Indication: DIABETES MELLITUS
     Route: 048
     Dates: start: 20090501, end: 20091021
  6. CYANOCOBALAMIN [Concomitant]
     Indication: HYPOVITAMINOSIS
     Route: 065
     Dates: start: 20090501, end: 20091021

REACTIONS (2)
  - DRUG INTERACTION [None]
  - HYPOKALAEMIA [None]
